FAERS Safety Report 6421331-X (Version None)
Quarter: 2009Q4

REPORT INFORMATION
  Report Type: 
  Country: None (occurrence: None)
  Receive Date: 20091030
  Receipt Date: 20091016
  Transmission Date: 20100525
  Serious: Yes (Other)
  Sender: FDA-Public Use
  Company Number: PHHY2009JP36336

PATIENT
  Sex: Female
  Weight: 58 kg

DRUGS (3)
  1. DIOVAN [Suspect]
     Indication: HYPERTENSION
     Dosage: 80 MG, QD
     Route: 048
     Dates: start: 20090311, end: 20090608
  2. NORVASC [Concomitant]
     Dosage: 10 MG, UNK
     Route: 048
  3. AROTINOLOL HYDROCHLORIDE [Concomitant]
     Dosage: 10 MG, UNK
     Route: 048

REACTIONS (4)
  - BLOOD IMMUNOGLOBULIN E INCREASED [None]
  - ERYTHEMA [None]
  - PHOTOSENSITIVITY REACTION [None]
  - RASH [None]
